FAERS Safety Report 5109206-X (Version None)
Quarter: 2006Q3

REPORT INFORMATION
  Report Type: 
  Country: None (occurrence: None)
  Receive Date: 20060920
  Receipt Date: 20060904
  Transmission Date: 20061208
  Serious: Yes (Death)
  Sender: FDA-Public Use
  Company Number: 2006SE04746

PATIENT
  Age: 25917 Day
  Sex: Male
  Weight: 72 kg

DRUGS (7)
  1. BLOPRESS [Suspect]
     Indication: HYPERTENSION
     Route: 048
     Dates: start: 20000906, end: 20010109
  2. BLOPRESS [Suspect]
     Route: 048
     Dates: start: 20010110, end: 20040119
  3. BASEN TABLETS 0.3 [Concomitant]
     Indication: DIABETES MELLITUS NON-INSULIN-DEPENDENT
     Route: 048
     Dates: start: 19990621, end: 20031224
  4. ADALAT [Concomitant]
     Indication: HYPERTENSION
     Route: 048
     Dates: start: 20020501, end: 20031224
  5. NEPHROX [Concomitant]
     Indication: HYPERTENSION
     Route: 048
     Dates: start: 20010207, end: 20031224
  6. GLIMICRON [Concomitant]
     Indication: DIABETES MELLITUS NON-INSULIN-DEPENDENT
     Route: 048
     Dates: start: 19990825, end: 20031224
  7. BEZATOL SR [Concomitant]
     Indication: HYPERLIPIDAEMIA
     Route: 048
     Dates: start: 20000726, end: 20031224

REACTIONS (4)
  - GASTRIC CANCER [None]
  - METASTASES TO LIVER [None]
  - METASTASES TO LUNG [None]
  - ORAL INTAKE REDUCED [None]
